FAERS Safety Report 5597123-0 (Version None)
Quarter: 2008Q1

REPORT INFORMATION
  Report Type: 
  Country: None (occurrence: None)
  Receive Date: 20080121
  Receipt Date: 20080111
  Transmission Date: 20080703
  Serious: Yes (Hospitalization)
  Sender: FDA-Public Use
  Company Number: PHBS2008CH00756

PATIENT
  Age: 78 Year
  Sex: Female

DRUGS (2)
  1. FEMARA [Suspect]
     Indication: BREAST CANCER
     Dosage: 2.5 MG/D
     Route: 065
     Dates: start: 20070901, end: 20080101
  2. DIOVAN HCT [Suspect]
     Route: 065

REACTIONS (5)
  - HYPONATRAEMIA [None]
  - MASTECTOMY [None]
  - RENAL TUBULAR DISORDER [None]
  - SOMNOLENCE [None]
  - URINE SODIUM INCREASED [None]
